FAERS Safety Report 5115772-0 (Version None)
Quarter: 2006Q3

REPORT INFORMATION
  Report Type: 
  Country: None (occurrence: None)
  Receive Date: 20060926
  Receipt Date: 20060926
  Transmission Date: 20061208
  Serious: No
  Sender: FDA-Public Use
  Company Number: None

PATIENT
  Sex: Male
  Weight: 81 kg

DRUGS (7)
  1. FLUOXETINE [Suspect]
     Indication: DEPRESSION
     Dosage: 20 MG DAILY PO
     Route: 048
     Dates: start: 20060518, end: 20060609
  2. COMBIVENT [Concomitant]
  3. MAXZIDE [Concomitant]
  4. METHOCARBAMOL [Concomitant]
  5. ZOCOR [Concomitant]
  6. VERAPAMIL HCL [Concomitant]
  7. METHYLPHENIDATE HCL [Concomitant]

REACTIONS (1)
  - HYPERHIDROSIS [None]
